FAERS Safety Report 20831783 (Version 1)
Quarter: 2022Q2

REPORT INFORMATION
  Report Type: Spontaneous
  Country: US (occurrence: None)
  Receive Date: 20220516
  Receipt Date: 20220516
  Transmission Date: 20220721
  Serious: No
  Sender: FDA-Public Use
  Company Number: US-Hikma Pharmaceuticals USA Inc.-US-H14001-21-03684

PATIENT
  Sex: Male

DRUGS (1)
  1. LIDOCAINE VISCOUS [Suspect]
     Active Substance: LIDOCAINE HYDROCHLORIDE
     Indication: Product used for unknown indication
     Dosage: SWISH, GARGLE AND SPIT 10 TO 15 ML IN THE MOUTH (MAY SWALLOW IF DESIRED, NOT TO EXCEED SIX DOSES IN

REACTIONS (1)
  - Tooth discolouration [Unknown]
